FAERS Safety Report 17346350 (Version 1)
Quarter: 2020Q1

REPORT INFORMATION
  Report Type: Spontaneous
  Country: US (occurrence: US)
  Receive Date: 20200129
  Receipt Date: 20200129
  Transmission Date: 20200409
  Serious: No
  Sender: FDA-Public Use
  Company Number: None

PATIENT
  Age: 78 Year
  Sex: Female
  Weight: 74.25 kg

DRUGS (3)
  1. GABAPENTIN. [Concomitant]
     Active Substance: GABAPENTIN
  2. LIPITOR [Concomitant]
     Active Substance: ATORVASTATIN CALCIUM
  3. IBANDRONATE 150 MG [Suspect]
     Active Substance: IBANDRONATE SODIUM
     Indication: BONE DENSITY ABNORMAL
     Dates: start: 20190630

REACTIONS (7)
  - Vomiting [None]
  - Faeces discoloured [None]
  - Abdominal pain [None]
  - Viral infection [None]
  - Myalgia [None]
  - Pain [None]
  - Spinal fusion surgery [None]

NARRATIVE: CASE EVENT DATE: 20200118
